FAERS Safety Report 24113075 (Version 1)
Quarter: 2024Q3

REPORT INFORMATION
  Report Type: Spontaneous
  Country: US (occurrence: US)
  Receive Date: 20240719
  Receipt Date: 20240719
  Transmission Date: 20241016
  Serious: No
  Sender: CB FLEET
  Company Number: US-PRESTIGE-202407-US-002122

PATIENT
  Sex: Female

DRUGS (1)
  1. TAGAMET HB [Suspect]
     Active Substance: CIMETIDINE
     Indication: Dyspepsia
     Dosage: 3 NIGHTS
     Route: 048

REACTIONS (1)
  - Drug ineffective [Not Recovered/Not Resolved]
